FAERS Safety Report 22226328 (Version 1)
Quarter: 2023Q2

REPORT INFORMATION
  Report Type: Spontaneous
  Country: US (occurrence: US)
  Receive Date: 20230419
  Receipt Date: 20230419
  Transmission Date: 20230721
  Serious: Yes (Other)
  Sender: FDA-Public Use
  Company Number: US-LUPIN PHARMACEUTICALS INC.-2023-02928

PATIENT
  Age: 56 Year
  Sex: Female

DRUGS (2)
  1. HYDROXYCHLOROQUINE [Suspect]
     Active Substance: HYDROXYCHLOROQUINE
     Indication: COVID-19
     Dosage: UNK
     Route: 065
  2. PFIZER-BIONTECH COVID-19 VACCINE [Suspect]
     Active Substance: TOZINAMERAN
     Indication: COVID-19 immunisation
     Dosage: UNK, TWO DOSES
     Route: 065
     Dates: start: 202104

REACTIONS (4)
  - Oral lichen planus [Unknown]
  - Mucosal inflammation [Unknown]
  - Oral lichenoid reaction [Unknown]
  - Off label use [Unknown]
